FAERS Safety Report 5804276-5 (Version None)
Quarter: 2008Q3

REPORT INFORMATION
  Report Type: 
  Country: None (occurrence: None)
  Receive Date: 20080709
  Receipt Date: 20080121
  Transmission Date: 20090109
  Serious: Yes (Hospitalization)
  Sender: FDA-Public Use
  Company Number: FR-AVENTIS-200614720GDDC

PATIENT
  Age: 69 Year
  Sex: Female
  Weight: 70 kg

DRUGS (14)
  1. AFLIBERCEPT [Suspect]
     Route: 042
     Dates: start: 20060425, end: 20060425
  2. TAXOTERE [Suspect]
     Route: 042
     Dates: start: 20060425, end: 20060425
  3. CISPLATYL [Suspect]
     Route: 042
     Dates: start: 20060425, end: 20060425
  4. ZYLORIC [Concomitant]
     Route: 048
     Dates: start: 20060401
  5. ENDOTELON                          /00811401/ [Concomitant]
     Route: 048
     Dates: start: 19950101
  6. VASTAREL [Concomitant]
     Route: 048
     Dates: start: 19950101
  7. LEVOTHYROX [Concomitant]
     Indication: HYPOTHYROIDISM
     Route: 048
  8. OMEPRAZOLE [Concomitant]
     Indication: PROPHYLAXIS
     Dosage: DOSE QUANTITY: 20
     Route: 048
     Dates: start: 20050101
  9. GAVISCON [Concomitant]
     Route: 048
     Dates: start: 20050101
  10. TRIATEC                            /00885601/ [Concomitant]
     Route: 048
     Dates: start: 20060505
  11. INIPOMP                            /01263201/ [Concomitant]
     Indication: PROPHYLAXIS
     Route: 048
     Dates: start: 20050101
  12. TOPALGIC [Concomitant]
     Route: 048
     Dates: start: 20060515
  13. XANAX [Concomitant]
     Indication: ANXIETY
     Route: 048
     Dates: start: 20060515
  14. DAFALGAN                           /00020001/ [Concomitant]
     Route: 048
     Dates: start: 20060515

REACTIONS (5)
  - CARDIOMYOPATHY [None]
  - DYSPNOEA [None]
  - HYPERTENSION [None]
  - PULMONARY EMBOLISM [None]
  - RENAL FAILURE ACUTE [None]
